FAERS Safety Report 8664803 (Version 4)
Quarter: 2012Q4

REPORT INFORMATION
  Report Type: Report from Study
  Country: FR (occurrence: FR)
  Receive Date: 20120713
  Receipt Date: 20121221
  Transmission Date: 20130627
  Serious: Yes (Life-Threatening, Hospitalization)
  Sender: FDA-Public Use
  Company Number: FR-PFIZER INC-2012164521

PATIENT
  Age: 65 Year
  Sex: Male
  Weight: 78 kg

DRUGS (2)
  1. AXITINIB [Suspect]
     Indication: SOLID TUMOR
     Dosage: 6 mg, per day, in 6 intakes
     Dates: start: 20110913
  2. EVEROLIMUS [Suspect]
     Indication: SOLID TUMOR
     Dosage: 5 mg, per day, in one intake
     Dates: start: 20110920

REACTIONS (2)
  - Cardiomyopathy [Unknown]
  - Acute pulmonary oedema [Unknown]
